FAERS Safety Report 15037685 (Version 1)
Quarter: 2018Q2

REPORT INFORMATION
  Report Type: Spontaneous
  Country: DE (occurrence: DE)
  Receive Date: 20180620
  Receipt Date: 20180620
  Transmission Date: 20180711
  Serious: Yes (Hospitalization)
  Sender: FDA-Public Use
  Company Number: DE-TEVA-2018-DE-911384

PATIENT
  Age: 66 Year
  Sex: Male

DRUGS (5)
  1. AMLODIPIN [Concomitant]
     Active Substance: AMLODIPINE BESYLATE
     Dosage: 5 MG, 1-0-0-0
  2. SYMBICORT [Concomitant]
     Active Substance: BUDESONIDE\FORMOTEROL FUMARATE DIHYDRATE
     Dosage: 80|4.5 ?G, 1-0-1-0
     Route: 065
  3. CARBOPLATIN. [Suspect]
     Active Substance: CARBOPLATIN
     Dosage: NK MG, NK
     Route: 065
  4. ETOPOSID [Suspect]
     Active Substance: ETOPOSIDE
     Dosage: NK MG, NK
     Route: 065
  5. SPIRIVA 18 MIKROGRAMM [Concomitant]
     Dosage: 18 ?G, 1-0-0-0

REACTIONS (2)
  - Cough [Unknown]
  - Pyrexia [Unknown]
